FAERS Safety Report 6077623-X (Version None)
Quarter: 2009Q1

REPORT INFORMATION
  Report Type: 
  Country: None (occurrence: None)
  Receive Date: 20090211
  Receipt Date: 20090126
  Transmission Date: 20090719
  Serious: Yes (Death, Hospitalization)
  Sender: FDA-Public Use
  Company Number: 2009AL000650

PATIENT
  Sex: Male

DRUGS (2)
  1. DILTIAZEM HYDROCHLORIDE [Suspect]
     Indication: MEDICATION ERROR
     Dosage: 120 MG;
     Dates: start: 19990101, end: 19990101
  2. WARFARIN SODIUM [Concomitant]

REACTIONS (1)
  - SUBDURAL HAEMATOMA [None]
